FAERS Safety Report 8607942-1 (Version None)
Quarter: 2012Q3

REPORT INFORMATION
  Report Type: 
  Country: None (occurrence: None)
  Receive Date: 20120821
  Receipt Date: 20120810
  Transmission Date: 20120928
  Serious: Yes (Hospitalization, Other)
  Sender: FDA-Public Use
  Company Number: IE-MPIJNJ-2012-05755

PATIENT

DRUGS (9)
  1. VELCADE [Suspect]
     Indication: MULTIPLE MYELOMA
     Dosage: 1.3 MG/M2, UNK
     Route: 065
     Dates: start: 20120106
  2. PANTOPRAZOLE [Concomitant]
     Dosage: 40 MG, UNK
  3. CALCICHEW-D3 FORTE [Concomitant]
  4. DEXAMETHASONE [Concomitant]
  5. DELTACORTRIL                       /00016201/ [Concomitant]
     Dosage: 100 MG, UNK
  6. ASPIRIN [Concomitant]
     Dosage: 75 MG, UNK
  7. MELPHALAN HYDROCHLORIDE [Concomitant]
     Dosage: 18 MG, UNK
  8. ALLOPURINOL [Concomitant]
     Dosage: 100 MG, UNK
  9. VALTREX [Concomitant]
     Dosage: 500 MG, UNK

REACTIONS (1)
  - BLOOD GLUCOSE INCREASED [None]
